FAERS Safety Report 11450990 (Version 1)
Quarter: 2015Q3

REPORT INFORMATION
  Report Type: Spontaneous
  Country: AU (occurrence: AU)
  Receive Date: 20150903
  Receipt Date: 20150903
  Transmission Date: 20151125
  Serious: Yes (Other)
  Sender: FDA-Public Use
  Company Number: AU-CIPLA LTD.-2015AU07108

PATIENT

DRUGS (4)
  1. CARBOPLATIN. [Suspect]
     Active Substance: CARBOPLATIN
     Indication: OPTIC GLIOMA
     Dosage: UNK, FOR 12 AND 5 MONTHS
     Route: 065
  2. TEMOZOLOMIDE. [Suspect]
     Active Substance: TEMOZOLOMIDE
     Indication: OPTIC GLIOMA
     Dosage: UNK, FOR 12 MONTHS
     Route: 065
  3. IRINOTECAN [Suspect]
     Active Substance: IRINOTECAN
     Indication: OPTIC GLIOMA
     Dosage: 125 TO 150 MG/M2 EVERY 2 WEEKS
     Route: 042
  4. BEVACIZUMAB [Suspect]
     Active Substance: BEVACIZUMAB
     Indication: OPTIC GLIOMA
     Dosage: 10 MG/KG, EVERY 2 WEEKS FOR 12 MONTHS
     Route: 042

REACTIONS (7)
  - Treatment failure [Unknown]
  - Disease progression [Unknown]
  - Metastasis [Unknown]
  - Drooling [Recovered/Resolved]
  - Headache [Unknown]
  - Disease recurrence [Unknown]
  - Dyskinesia [Recovered/Resolved]
